FAERS Safety Report 20233592 (Version 1)
Quarter: 2021Q4

REPORT INFORMATION
  Report Type: Spontaneous
  Country: US (occurrence: US)
  Receive Date: 20211227
  Receipt Date: 20211227
  Transmission Date: 20220304
  Serious: Yes (Other)
  Sender: FDA-Public Use
  Company Number: US-TEVA-2021-US-1990677

PATIENT
  Age: 61 Year
  Sex: Male

DRUGS (1)
  1. EPINEPHRINE [Suspect]
     Active Substance: EPINEPHRINE
     Indication: Pharyngeal swelling
     Dosage: 0.3 MG / 0.3 ML
     Route: 065
     Dates: start: 20211213

REACTIONS (2)
  - Therapeutic product effect delayed [Unknown]
  - Device malfunction [Unknown]

NARRATIVE: CASE EVENT DATE: 20211213
